FAERS Safety Report 15281365 (Version 2)
Quarter: 2018Q3

REPORT INFORMATION
  Report Type: Report from Study
  Country: US (occurrence: US)
  Receive Date: 20180815
  Receipt Date: 20180904
  Transmission Date: 20181010
  Serious: Yes (Other)
  Sender: FDA-Public Use
  Company Number: US-ASTELLAS-2018US035920

PATIENT
  Age: 82 Year
  Sex: Male

DRUGS (1)
  1. ENZALUTAMIDE [Suspect]
     Active Substance: ENZALUTAMIDE
     Indication: PRODUCT USED FOR UNKNOWN INDICATION
     Route: 065
     Dates: start: 201807

REACTIONS (5)
  - Retching [Unknown]
  - Prostatic specific antigen increased [Unknown]
  - Weight decreased [Unknown]
  - Decreased appetite [Unknown]
  - Secretion discharge [Unknown]

NARRATIVE: CASE EVENT DATE: 20180807
